FAERS Safety Report 17644774 (Version 1)
Quarter: 2020Q2

REPORT INFORMATION
  Report Type: Spontaneous
  Country: US (occurrence: US)
  Receive Date: 20200408
  Receipt Date: 20200408
  Transmission Date: 20200713
  Serious: Yes (Hospitalization)
  Sender: FDA-Public Use
  Company Number: None

PATIENT
  Age: 30 Month
  Sex: Female
  Weight: 10.9 kg

DRUGS (2)
  1. THIOTEPA. [Suspect]
     Active Substance: THIOTEPA
     Dates: end: 20200306
  2. CYCLOPHOSPHAMIDE. [Suspect]
     Active Substance: CYCLOPHOSPHAMIDE
     Dates: end: 20200309

REACTIONS (8)
  - Abdominal discomfort [None]
  - Device occlusion [None]
  - Dysuria [None]
  - BK polyomavirus test positive [None]
  - Autologous haematopoietic stem cell transplant [None]
  - Blood urine present [None]
  - Haemorrhage urinary tract [None]
  - Cystitis haemorrhagic [None]

NARRATIVE: CASE EVENT DATE: 20200322
